FAERS Safety Report 10516176 (Version 1)
Quarter: 2014Q3

REPORT INFORMATION
  Report Type: Spontaneous
  Country: US (occurrence: None)
  Receive Date: 20140926
  Receipt Date: 20140926
  Transmission Date: 20150326
  Serious: No
  Sender: FDA-Public Use
  Company Number: 1000068118

PATIENT
  Age: 67 Year
  Sex: Female

DRUGS (2)
  1. CELEBREX ( CELECOXIB) (CELECOXIB) [Concomitant]
  2. LINZESS [Suspect]
     Active Substance: LINACLOTIDE
     Indication: CONSTIPATION
     Route: 048
     Dates: start: 20140608

REACTIONS (2)
  - Diarrhoea [None]
  - Flatulence [None]

NARRATIVE: CASE EVENT DATE: 201406
